FAERS Safety Report 26075073 (Version 1)
Quarter: 2025Q4

REPORT INFORMATION
  Report Type: Spontaneous
  Country: US (occurrence: US)
  Receive Date: 20251121
  Receipt Date: 20251121
  Transmission Date: 20260118
  Serious: Yes (Hospitalization, Other)
  Sender: SANDOZ
  Company Number: US-SANDOZ-SDZ2025US086715

PATIENT
  Age: 46 Year
  Sex: Female

DRUGS (1)
  1. HYDROXYCHLOROQUINE [Suspect]
     Active Substance: HYDROXYCHLOROQUINE
     Indication: Systemic lupus erythematosus
     Dosage: TAKING ALTERNATING DOSES OF 200 MG AND 400 MG DAILY
     Route: 065

REACTIONS (4)
  - Microvascular coronary artery disease [Recovering/Resolving]
  - Lupus endocarditis [Recovering/Resolving]
  - Cardiotoxicity [Recovering/Resolving]
  - Left ventricular failure [Recovering/Resolving]
